FAERS Safety Report 21677112 (Version 1)
Quarter: 2022Q4

REPORT INFORMATION
  Report Type: Spontaneous
  Country: US (occurrence: US)
  Receive Date: 20221203
  Receipt Date: 20221203
  Transmission Date: 20230113
  Serious: No
  Sender: FDA-Public Use
  Company Number: US-SANOFI-01388069

PATIENT

DRUGS (2)
  1. SARCLISA [Suspect]
     Active Substance: ISATUXIMAB-IRFC
     Indication: Plasma cell myeloma
     Dosage: 10 MG/KG
  2. SARCLISA [Suspect]
     Active Substance: ISATUXIMAB-IRFC
     Indication: Haemodialysis

REACTIONS (1)
  - Product use in unapproved indication [Unknown]
